FAERS Safety Report 15400456 (Version 2)
Quarter: 2018Q4

REPORT INFORMATION
  Report Type: Spontaneous
  Country: US (occurrence: US)
  Receive Date: 20180919
  Receipt Date: 20181016
  Transmission Date: 20190204
  Serious: No
  Sender: FDA-Public Use
  Company Number: US-ASTRAZENECA-2018SF07769

PATIENT
  Age: 19298 Day
  Sex: Female
  Weight: 87.1 kg

DRUGS (3)
  1. SYMBICORT [Suspect]
     Active Substance: BUDESONIDE\FORMOTEROL FUMARATE DIHYDRATE
     Indication: ASTHMA
     Dosage: 160 MCG/4.5 MCG, 2 PUFFS DAILY
     Route: 055
     Dates: start: 2018
  2. GABAPENTIN. [Concomitant]
     Active Substance: GABAPENTIN
     Indication: MIGRAINE
     Dosage: UNKNOWN
     Route: 066
  3. SYMBICORT [Suspect]
     Active Substance: BUDESONIDE\FORMOTEROL FUMARATE DIHYDRATE
     Indication: ASTHMA
     Dosage: 160 MCG/4.5 MCG, 2 PUFFS DAILY
     Route: 055
     Dates: start: 2018

REACTIONS (13)
  - Migraine [Unknown]
  - Ocular discomfort [Unknown]
  - Product use issue [Unknown]
  - Pain in extremity [Unknown]
  - Dyspnoea [Unknown]
  - Adverse event [Unknown]
  - Off label use [Unknown]
  - Chronic obstructive pulmonary disease [Unknown]
  - Adverse drug reaction [Unknown]
  - Stress [Not Recovered/Not Resolved]
  - Asthma [Unknown]
  - Fear [Unknown]
  - Product quality issue [Unknown]

NARRATIVE: CASE EVENT DATE: 2018
